FAERS Safety Report 21967573 (Version 1)
Quarter: 2023Q1

REPORT INFORMATION
  Report Type: Spontaneous
  Country: ZA (occurrence: ZA)
  Receive Date: 20230208
  Receipt Date: 20230208
  Transmission Date: 20230418
  Serious: Yes (Other)
  Sender: FDA-Public Use
  Company Number: ZA-PFIZER INC-202300056011

PATIENT
  Age: 32 Year
  Sex: Female
  Weight: 67 kg

DRUGS (2)
  1. SULFASALAZINE [Suspect]
     Active Substance: SULFASALAZINE
     Dosage: 1 G, 2X/DAY
     Route: 048
     Dates: start: 202202
  2. CHLOROQUINE [Suspect]
     Active Substance: CHLOROQUINE
     Dosage: UNK
     Dates: start: 202205, end: 202211

REACTIONS (4)
  - Polyarthritis [Unknown]
  - Cutaneous vasculitis [Unknown]
  - Treatment failure [Unknown]
  - C-reactive protein increased [Unknown]
